FAERS Safety Report 25683264 (Version 1)
Quarter: 2025Q3

REPORT INFORMATION
  Report Type: Spontaneous
  Country: US (occurrence: US)
  Receive Date: 20250814
  Receipt Date: 20250814
  Transmission Date: 20251020
  Serious: Yes (Death)
  Sender: ARDELYX
  Company Number: US-ARDELYX-2025ARDX006111

PATIENT
  Age: 44 Year
  Sex: Male

DRUGS (1)
  1. XPHOZAH [Suspect]
     Active Substance: TENAPANOR HYDROCHLORIDE
     Indication: Chronic kidney disease
     Route: 048
     Dates: end: 20250606

REACTIONS (1)
  - Death [Fatal]

NARRATIVE: CASE EVENT DATE: 20250606
